FAERS Safety Report 9738801 (Version 5)
Quarter: 2014Q1

REPORT INFORMATION
  Report Type: Report from Study
  Country: US (occurrence: US)
  Receive Date: 20131209
  Receipt Date: 20140110
  Transmission Date: 20141002
  Serious: Yes (Hospitalization)
  Sender: FDA-Public Use
  Company Number: US-ROCHE-1210841

PATIENT
  Age: 29 Year
  Sex: Female
  Weight: 64.47 kg

DRUGS (24)
  1. OMALIZUMAB [Suspect]
     Indication: ASTHMA
     Dosage: DATE OF MOST RECENT DOSE: /SEP/2013
     Route: 058
     Dates: start: 20130314
  2. OMALIZUMAB [Suspect]
     Dosage: 2ND TRIMESTER
     Route: 058
     Dates: start: 20130530
  3. OMALIZUMAB [Suspect]
     Dosage: 2ND TRIMESTER
     Route: 058
     Dates: start: 20130613
  4. OMALIZUMAB [Suspect]
     Dosage: 2ND TRIMESTER
     Route: 058
     Dates: start: 20130627
  5. OMALIZUMAB [Suspect]
     Dosage: 2ND TRIMESTER
     Route: 058
     Dates: start: 20130711
  6. OMALIZUMAB [Suspect]
     Dosage: 2ND TRIMESTER
     Route: 058
     Dates: start: 20130729
  7. OMALIZUMAB [Suspect]
     Dosage: 2ND TRIMESTER
     Route: 058
     Dates: start: 20130812
  8. OMALIZUMAB [Suspect]
     Dosage: 3RD TRIMESTER
     Route: 058
     Dates: start: 20130826
  9. OMALIZUMAB [Suspect]
     Dosage: 1ST TRIMESTER
     Route: 058
     Dates: start: 20130502
  10. OMALIZUMAB [Suspect]
     Dosage: 2ND TRIMESTER
     Route: 058
     Dates: start: 20130516
  11. OMALIZUMAB [Suspect]
     Dosage: 1ST TRIMESTER
     Route: 058
     Dates: start: 20130328
  12. OMALIZUMAB [Suspect]
     Dosage: 1ST TRIMESTER
     Route: 058
     Dates: start: 20130418
  13. OMALIZUMAB [Suspect]
     Dosage: 3RD TRIMESTER
     Route: 058
     Dates: start: 20130910, end: 20130924
  14. OMALIZUMAB [Suspect]
     Route: 065
     Dates: start: 2011, end: 20121220
  15. SINGULAIR [Concomitant]
     Indication: ASTHMA
  16. ADVAIR [Concomitant]
     Indication: ASTHMA
  17. SYMBICORT [Concomitant]
     Indication: ASTHMA
  18. ZOFRAN [Concomitant]
     Indication: NAUSEA
  19. ZYRTEC [Concomitant]
     Indication: HYPERSENSITIVITY
  20. TYLENOL [Concomitant]
     Indication: HEADACHE
  21. TYLENOL [Concomitant]
     Indication: PAIN
  22. TYLENOL PM [Concomitant]
     Indication: INSOMNIA
  23. NYQUIL COLD + FLU [Concomitant]
     Indication: INFLUENZA
  24. BENADRYL (UNITED STATES) [Concomitant]
     Indication: RESTLESS LEGS SYNDROME

REACTIONS (6)
  - Pre-eclampsia [Recovered/Resolved]
  - Vomiting [Unknown]
  - Vaginal haemorrhage [Unknown]
  - Muscle spasms [Unknown]
  - Postpartum depression [Unknown]
  - Exposure during pregnancy [Unknown]
